FAERS Safety Report 7541758-2 (Version None)
Quarter: 2011Q2

REPORT INFORMATION
  Report Type: 
  Country: None (occurrence: None)
  Receive Date: 20110613
  Receipt Date: 20110531
  Transmission Date: 20111010
  Serious: Yes (Hospitalization, Other)
  Sender: FDA-Public Use
  Company Number: US-ELI_LILLY_AND_COMPANY-US201106000570

PATIENT
  Sex: Female

DRUGS (6)
  1. AVAPRO [Concomitant]
     Dosage: 75 MG, UNK
  2. PREVACID [Concomitant]
     Dosage: 30 MG, UNK
  3. ATIVAN [Concomitant]
     Dosage: 1 MG, PRN
  4. FORTEO [Suspect]
  5. COUMADIN [Concomitant]
     Dosage: 5 MG, QD
  6. SYNTHROID [Concomitant]
     Dosage: 50 UG, UNK

REACTIONS (16)
  - THROMBOSIS [None]
  - ABDOMINAL PAIN [None]
  - BLISTER [None]
  - MUSCULOSKELETAL PAIN [None]
  - PHARYNGEAL OEDEMA [None]
  - BLOOD COUNT ABNORMAL [None]
  - MALAISE [None]
  - DYSPHAGIA [None]
  - NEUROPATHY PERIPHERAL [None]
  - DYSPNOEA [None]
  - DEHYDRATION [None]
  - PULMONARY EMBOLISM [None]
  - OESOPHAGEAL STENOSIS [None]
  - HYPERSENSITIVITY [None]
  - NEOPLASM MALIGNANT [None]
  - NAUSEA [None]
